FAERS Safety Report 13269926 (Version 2)
Quarter: 2017Q1

REPORT INFORMATION
  Report Type: Spontaneous
  Country: CN (occurrence: CN)
  Receive Date: 20170224
  Receipt Date: 20170301
  Transmission Date: 20170428
  Serious: Yes (Other)
  Sender: FDA-Public Use
  Company Number: PHHY2017CN026243

PATIENT
  Age: 19 Year
  Sex: Female

DRUGS (1)
  1. CICLOSPORIN [Suspect]
     Active Substance: CYCLOSPORINE
     Indication: GLOMERULONEPHRITIS MINIMAL LESION
     Dosage: 200 MG, QD
     Route: 065

REACTIONS (2)
  - Drug dependence [Unknown]
  - Product use issue [Unknown]
